FAERS Safety Report 7607129-5 (Version None)
Quarter: 2011Q3

REPORT INFORMATION
  Report Type: 
  Country: None (occurrence: None)
  Receive Date: 20110713
  Receipt Date: 20110628
  Transmission Date: 20111222
  Serious: No
  Sender: FDA-Public Use
  Company Number: US-B.I. PHARMACEUTICALS,INC./RIDGEFIELD-2011-BP-16481BP

PATIENT
  Sex: Female

DRUGS (2)
  1. MULTAQ [Suspect]
  2. PRADAXA [Suspect]

REACTIONS (3)
  - HAEMORRHAGE [None]
  - OEDEMA [None]
  - HEPATIC ENZYME INCREASED [None]
